FAERS Safety Report 24786711 (Version 1)
Quarter: 2024Q4

REPORT INFORMATION
  Report Type: Spontaneous
  Country: US (occurrence: US)
  Receive Date: 20241230
  Receipt Date: 20241230
  Transmission Date: 20250114
  Serious: No
  Sender: CELLTRION
  Company Number: US-CELLTRION INC.-2024US010279

PATIENT

DRUGS (5)
  1. TRUXIMA [Suspect]
     Active Substance: RITUXIMAB-ABBS
     Indication: Rheumatoid arthritis
     Dosage: 1000 MG DAY ZERO AND 14 EVERY 6 MONTHS
     Dates: start: 20211201
  2. TRUXIMA [Suspect]
     Active Substance: RITUXIMAB-ABBS
     Indication: Multiple sclerosis
     Dosage: 1000 MG DAY ZERO AND 14 EVERY 6 MONTHS
     Dates: start: 20211214
  3. TRUXIMA [Suspect]
     Active Substance: RITUXIMAB-ABBS
     Dosage: 1000 MG DAY ZERO AND 14 EVERY 6 MONTHS
     Dates: start: 20220607
  4. TRUXIMA [Suspect]
     Active Substance: RITUXIMAB-ABBS
     Dosage: 1000 MG DAY ZERO AND 14 EVERY 6 MONTHS
     Dates: start: 20220621
  5. TRUXIMA [Suspect]
     Active Substance: RITUXIMAB-ABBS
     Dosage: 1000 MG EVERY 6 MONTHS
     Dates: start: 20220705

REACTIONS (2)
  - Off label use [Unknown]
  - Intentional product use issue [Unknown]
